FAERS Safety Report 6408128-1 (Version None)
Quarter: 2009Q4

REPORT INFORMATION
  Report Type: 
  Country: None (occurrence: None)
  Receive Date: 20091019
  Receipt Date: 20091009
  Transmission Date: 20100525
  Serious: No
  Sender: FDA-Public Use
  Company Number: 2009011304

PATIENT

DRUGS (1)
  1. FENTORA [Suspect]
     Dosage: 12800 MCG (1600 MCG, 1 IN 13 HR), BU
     Route: 002

REACTIONS (2)
  - INCORRECT DRUG ADMINISTRATION DURATION [None]
  - MEDICATION ERROR [None]
